FAERS Safety Report 14482925 (Version 1)
Quarter: 2018Q1

REPORT INFORMATION
  Report Type: Report from Study
  Country: GB (occurrence: GB)
  Receive Date: 20180203
  Receipt Date: 20180203
  Transmission Date: 20180509
  Serious: Yes (Other)
  Sender: FDA-Public Use
  Company Number: GB-CONCORDIA PHARMACEUTICALS INC.-E2B_00009670

PATIENT
  Age: 66 Year
  Sex: Female

DRUGS (3)
  1. PREDNISOLONE. [Suspect]
     Active Substance: PREDNISOLONE
     Indication: POLYMYALGIA RHEUMATICA
  2. BETAFERON [Suspect]
     Active Substance: INTERFERON BETA-1B
     Indication: MULTIPLE SCLEROSIS
     Dosage: 250 ?G, QOD
     Route: 058
     Dates: start: 20110713
  3. FLUVACCIN [Suspect]
     Active Substance: INFLUENZA VIRUS VACCINE

REACTIONS (15)
  - Injection site bruising [Unknown]
  - Neck pain [Unknown]
  - Dyspnoea [Unknown]
  - Myalgia [Unknown]
  - Mobility decreased [Unknown]
  - Asthma [Unknown]
  - Arthritis [Unknown]
  - Nail disorder [Unknown]
  - Gait disturbance [Unknown]
  - Polymyalgia rheumatica [Unknown]
  - Muscular weakness [Unknown]
  - Musculoskeletal disorder [Unknown]
  - Injection site pain [Unknown]
  - Contusion [Unknown]
  - Depression [Recovering/Resolving]

NARRATIVE: CASE EVENT DATE: 201410
